FAERS Safety Report 25429947 (Version 1)
Quarter: 2025Q2

REPORT INFORMATION
  Report Type: Spontaneous
  Country: US (occurrence: US)
  Receive Date: 20250612
  Receipt Date: 20250612
  Transmission Date: 20250716
  Serious: No
  Sender: BRAINTREE
  Company Number: US-BRAINTREE LABORATORIES, INC.-2024BTE00761

PATIENT
  Age: 65 Year
  Sex: Female

DRUGS (12)
  1. PEG-3350, SODIUM CHLORIDE, SODIUM BICARBONATE AND POTASSIUM CHLORIDE [Suspect]
     Active Substance: POLYETHYLENE GLYCOL 3350\POTASSIUM CHLORIDE\SODIUM BICARBONATE\SODIUM CHLORIDE
     Indication: Colonoscopy
     Route: 048
     Dates: start: 20241111
  2. ALPRAZOLAM [Concomitant]
     Active Substance: ALPRAZOLAM
  3. LASIX [Concomitant]
     Active Substance: FUROSEMIDE
  4. METOPROLOL [Concomitant]
     Active Substance: METOPROLOL
  5. SPIRONOLACTONE [Concomitant]
     Active Substance: SPIRONOLACTONE
  6. SYMBICORT [Concomitant]
     Active Substance: BUDESONIDE\FORMOTEROL FUMARATE DIHYDRATE
  7. ALBUTEROL [Concomitant]
     Active Substance: ALBUTEROL
  8. AMIODARONE [Concomitant]
     Active Substance: AMIODARONE
  9. CINACALCET [Concomitant]
     Active Substance: CINACALCET
  10. TRAZODONE [Concomitant]
     Active Substance: TRAZODONE HYDROCHLORIDE
  11. MIDODRINE [Concomitant]
     Active Substance: MIDODRINE
  12. VITAMIN D3 [Concomitant]
     Active Substance: CHOLECALCIFEROL
     Dosage: 50000 IU, 1X/WEEK

REACTIONS (1)
  - Vomiting [Recovered/Resolved]

NARRATIVE: CASE EVENT DATE: 20241111
